FAERS Safety Report 5230030-1 (Version None)
Quarter: 2007Q1

REPORT INFORMATION
  Report Type: 
  Country: None (occurrence: None)
  Receive Date: 20070206
  Receipt Date: 20060918
  Transmission Date: 20070707
  Serious: No
  Sender: FDA-Public Use
  Company Number: US-GLAXOSMITHKLINE-A0620522A

PATIENT
  Age: 79 Year
  Sex: Female

DRUGS (5)
  1. PAROXETINE HCL [Suspect]
     Dosage: 20MG PER DAY
     Route: 048
     Dates: start: 20060515
  2. CORGARD [Concomitant]
  3. ATIVAN [Concomitant]
  4. ASPIRIN [Concomitant]
  5. VITAMINS [Concomitant]

REACTIONS (7)
  - BACK PAIN [None]
  - BLADDER DISCOMFORT [None]
  - CHILLS [None]
  - DEFAECATION URGENCY [None]
  - HEADACHE [None]
  - NECK PAIN [None]
  - POLLAKIURIA [None]
